FAERS Safety Report 4413266-9 (Version None)
Quarter: 2004Q3

REPORT INFORMATION
  Report Type: 
  Country: None (occurrence: None)
  Receive Date: 20040728
  Receipt Date: 20040719
  Transmission Date: 20050211
  Serious: Yes (Other)
  Sender: FDA-Public Use
  Company Number: HQWYE310521JUL04

PATIENT
  Age: 75 Year
  Sex: Female

DRUGS (2)
  1. PREMPRO [Suspect]
     Dosage: ORAL
     Route: 048
     Dates: start: 19950101, end: 20010101
  2. PREMARIN [Suspect]
     Indication: HORMONE REPLACEMENT THERAPY
     Dosage: ORAL
     Route: 048
     Dates: start: 19800101, end: 19950101

REACTIONS (1)
  - CERVIX CARCINOMA [None]
